FAERS Safety Report 25311647 (Version 1)
Quarter: 2025Q2

REPORT INFORMATION
  Report Type: Report from Study
  Country: US (occurrence: US)
  Receive Date: 20250514
  Receipt Date: 20250514
  Transmission Date: 20250717
  Serious: Yes (Other)
  Sender: JAZZ
  Company Number: US-JAZZ PHARMACEUTICALS-2025-US-011956

PATIENT
  Age: 29 Year
  Sex: Female

DRUGS (12)
  1. XYWAV [Suspect]
     Active Substance: CALCIUM OXYBATE\MAGNESIUM OXYBATE\POTASSIUM OXYBATE\SODIUM OXYBATE
     Indication: Cataplexy
  2. XYWAV [Suspect]
     Active Substance: CALCIUM OXYBATE\MAGNESIUM OXYBATE\POTASSIUM OXYBATE\SODIUM OXYBATE
     Indication: Narcolepsy
  3. XYWAV [Suspect]
     Active Substance: CALCIUM OXYBATE\MAGNESIUM OXYBATE\POTASSIUM OXYBATE\SODIUM OXYBATE
     Indication: Somnolence
  4. COLCHICINE [Suspect]
     Active Substance: COLCHICINE
     Indication: Product used for unknown indication
  5. RIBOFLAVIN [Concomitant]
     Active Substance: RIBOFLAVIN
     Dates: start: 20161119
  6. EPIPEN [Concomitant]
     Active Substance: EPINEPHRINE
     Dates: start: 20170101
  7. MAGNESIUM OXIDE [Concomitant]
     Active Substance: MAGNESIUM OXIDE
     Dates: start: 20180101
  8. DESVENLAFAXINE [Concomitant]
     Active Substance: DESVENLAFAXINE
     Dates: start: 20180101
  9. SUMATRIPTAN SUCCINATE [Concomitant]
     Active Substance: SUMATRIPTAN SUCCINATE
     Dates: start: 20160101
  10. TOPAMAX [Concomitant]
     Active Substance: TOPIRAMATE
     Dates: start: 20240701
  11. SUNOSI [Concomitant]
     Active Substance: SOLRIAMFETOL
     Dates: start: 20240711
  12. VITAMIN D3 [Concomitant]
     Active Substance: CHOLECALCIFEROL
     Dates: start: 20170101

REACTIONS (5)
  - Colitis [Unknown]
  - Brain fog [Unknown]
  - Dyspepsia [Unknown]
  - Renal disorder [Unknown]
  - Gastritis [Unknown]

NARRATIVE: CASE EVENT DATE: 20250401
